FAERS Safety Report 4470893-0 (Version None)
Quarter: 2004Q4

REPORT INFORMATION
  Report Type: 
  Country: None (occurrence: None)
  Receive Date: 20041011
  Receipt Date: 20040915
  Transmission Date: 20050328
  Serious: Yes (Hospitalization)
  Sender: FDA-Public Use
  Company Number: JP-BRISTOL-MYERS SQUIBB COMPANY-12703377

PATIENT
  Age: 75 Year
  Sex: Female

DRUGS (1)
  1. MAXIPIME [Suspect]
     Indication: IMPETIGO
     Dosage: ONCE DAILY
     Route: 042
     Dates: start: 20040826, end: 20040826

REACTIONS (1)
  - DELIRIUM [None]
